FAERS Safety Report 17458570 (Version 1)
Quarter: 2020Q1

REPORT INFORMATION
  Report Type: Spontaneous
  Country: US (occurrence: US)
  Receive Date: 20200225
  Receipt Date: 20200225
  Transmission Date: 20200409
  Serious: No
  Sender: FDA-Public Use
  Company Number: US-JUBILANT CADISTA PHARMACEUTICALS-2019JUB00087

PATIENT
  Sex: Male
  Weight: 90.7 kg

DRUGS (4)
  1. VALSARTAN. [Suspect]
     Active Substance: VALSARTAN
     Indication: HYPERTENSION
     Dosage: 80 MG, 2X/DAY
     Route: 048
     Dates: start: 2018, end: 201902
  2. VALSARTAN. [Suspect]
     Active Substance: VALSARTAN
     Dosage: 80 MG, 2X/DAY
     Route: 048
     Dates: end: 2018
  3. ROSUVASTATIN CALCIUM. [Concomitant]
     Active Substance: ROSUVASTATIN CALCIUM
  4. VALSARTAN. [Suspect]
     Active Substance: VALSARTAN
     Dosage: 80 MG, 2X/DAY
     Route: 048
     Dates: start: 201902

REACTIONS (3)
  - Blood pressure increased [Recovered/Resolved]
  - Drug ineffective [Recovered/Resolved]
  - Off label use [Not Recovered/Not Resolved]

NARRATIVE: CASE EVENT DATE: 2019
